FAERS Safety Report 20615745 (Version 2)
Quarter: 2022Q1

REPORT INFORMATION
  Report Type: Spontaneous
  Country: NL (occurrence: NL)
  Receive Date: 20220321
  Receipt Date: 20220331
  Transmission Date: 20220423
  Serious: Yes (Death, Life-Threatening)
  Sender: FDA-Public Use
  Company Number: NL-NOVARTISPH-NVSC2022NL032005

PATIENT
  Age: 72 Year
  Sex: Female

DRUGS (35)
  1. RIVASTIGMINE [Suspect]
     Active Substance: RIVASTIGMINE
     Indication: Product used for unknown indication
     Dosage: 6 MG, QD (1.5 MG CAPSULE 2X PER DAY AT 8:00 AM - 5:00 PM)
     Route: 065
  2. CARBIDOPA\LEVODOPA [Suspect]
     Active Substance: CARBIDOPA\LEVODOPA
     Indication: Product used for unknown indication
     Dosage: UNK, (MD: 6.0 ML, CD: 3.9 ML/H, ED: 2.0 ML;)
     Route: 050
     Dates: start: 2021, end: 2021
  3. CARBIDOPA\LEVODOPA [Suspect]
     Active Substance: CARBIDOPA\LEVODOPA
     Dosage: UNK, (MD 6.0 ML; CD 4.3 ML/H; ED 2.0 ML; ND 0.0 ML; CND)
     Route: 050
     Dates: start: 2021, end: 2021
  4. CARBIDOPA\LEVODOPA [Suspect]
     Active Substance: CARBIDOPA\LEVODOPA
     Dosage: UNK, (MD: 6.0 ML, CD: 4.1 ML/H, ED: 2.0 ML;)
     Route: 050
     Dates: start: 2021, end: 2021
  5. CARBIDOPA\LEVODOPA [Suspect]
     Active Substance: CARBIDOPA\LEVODOPA
     Dosage: UNK, (MD 4.0 ML; CD 2.5 ML/H; ED 1.0 ML)
     Route: 050
     Dates: start: 2021, end: 2021
  6. CARBIDOPA\LEVODOPA [Suspect]
     Active Substance: CARBIDOPA\LEVODOPA
     Dosage: MD: 6.0 ML, CD: 5.2 ML/H, ED: 2.0 ML
     Route: 050
     Dates: start: 2021, end: 2021
  7. CARBIDOPA\LEVODOPA [Suspect]
     Active Substance: CARBIDOPA\LEVODOPA
     Dosage: CND: 2.3 ML/H, END: 2.0 ML
     Route: 050
     Dates: start: 2021, end: 2021
  8. CARBIDOPA\LEVODOPA [Suspect]
     Active Substance: CARBIDOPA\LEVODOPA
     Dosage: MD 6.0 ML; CD 4.7 ML/H; ED 2.0 ML
     Route: 050
     Dates: start: 2021, end: 2021
  9. CARBIDOPA\LEVODOPA [Suspect]
     Active Substance: CARBIDOPA\LEVODOPA
     Dosage: MD 6.0 ML CD 4.8 ML/H ED 0.0 ML
     Route: 050
     Dates: start: 2021, end: 2021
  10. CARBIDOPA\LEVODOPA [Suspect]
     Active Substance: CARBIDOPA\LEVODOPA
     Dosage: MD 6.0 ML; CD 4.5 ML/H; ED 2.0 ML
     Route: 050
     Dates: start: 2021, end: 2021
  11. CARBIDOPA\LEVODOPA [Suspect]
     Active Substance: CARBIDOPA\LEVODOPA
     Dosage: MD: 6.0 ML, CD: 4.1 ML/H, ED: 2.0 ML;
     Route: 050
     Dates: start: 2021, end: 2021
  12. CARBIDOPA\LEVODOPA [Suspect]
     Active Substance: CARBIDOPA\LEVODOPA
     Dosage: MD 6.0 ML; CD 4.7 ML/H; ED 2.0 ML; ND 0.0 ML; CND
     Route: 050
     Dates: start: 2021
  13. PANTOPRAZOLE [Concomitant]
     Active Substance: PANTOPRAZOLE
     Indication: Product used for unknown indication
     Dosage: 20 MG, QD (1 PER DAY AT 8:00 AM)
     Route: 065
  14. VITAMIN B COMPLEX [Concomitant]
     Active Substance: CYANOCOBALAMIN\DEXPANTHENOL\NIACINAMIDE\PYRIDOXINE HYDROCHLORIDE\RIBOFLAVIN 5^-PHOSPHATE SODIUM\THIA
     Indication: Product used for unknown indication
     Dosage: UNK, (1 PER DAY AT 8:00 AM)
     Route: 065
  15. ROPINIROLE [Concomitant]
     Active Substance: ROPINIROLE
     Indication: Product used for unknown indication
     Dosage: 4 MG(1X PER DAY AT 8:00 AM)
     Route: 065
     Dates: start: 20210519
  16. ROPINIROLE [Concomitant]
     Active Substance: ROPINIROLE
     Dosage: 8 MG(1X PER DAY AT 8:00 AM)
     Route: 065
     Dates: start: 20210519
  17. CYANOCOBALAMIN [Concomitant]
     Active Substance: CYANOCOBALAMIN
     Indication: Product used for unknown indication
     Dosage: 1000 UG, (1 PER DAY AT 8:00 AM)
     Route: 065
  18. CLOZAPINE [Concomitant]
     Active Substance: CLOZAPINE
     Indication: Product used for unknown indication
     Dosage: 6.25 MG, (1 EVERY 2 DAYS AT 10:00 PM, 3 TIMES FOR THE NIGHT)
     Route: 065
  19. DICLOFENAC [Concomitant]
     Active Substance: DICLOFENAC
     Indication: Product used for unknown indication
     Dosage: UNK, (2X DAILY 10 MG/G ON LOWER BACK LEFT SIDE1X 8:00 AM; 1X 9:00 PM CONTINUOUSLY)
     Route: 065
  20. D CURA [Concomitant]
     Indication: Product used for unknown indication
     Dosage: 1 DOSAGE FORM, 13 WEEL, 2X PIECES OF 100000 IU/ML AMPOULE
     Route: 065
  21. FUROSEMIDE [Concomitant]
     Active Substance: FUROSEMIDE
     Indication: Product used for unknown indication
     Dosage: 20 MG(2 PER DAY AT 8:00 AM - 01:00 PM)
     Route: 065
  22. FUROSEMIDE [Concomitant]
     Active Substance: FUROSEMIDE
     Dosage: 40MG (WHEN NECESSARY 40 MILLIGRAMS MORE)
     Route: 065
  23. ACETAMINOPHEN [Concomitant]
     Active Substance: ACETAMINOPHEN
     Indication: Product used for unknown indication
     Dosage: 500 MG (3 TIMES A DAY CONTINUOUSLY)
     Route: 065
  24. ACETAMINOPHEN [Concomitant]
     Active Substance: ACETAMINOPHEN
     Dosage: 500 MG, BID (WHEN NEEDED, UP TO 2X PER DAY)
     Route: 065
  25. CANDESARTAN [Concomitant]
     Active Substance: CANDESARTAN
     Indication: Product used for unknown indication
     Dosage: 4 MG, QD(1X PER DAY AT 8:00 AM)
     Route: 065
  26. NAPROXEN [Concomitant]
     Active Substance: NAPROXEN
     Indication: Pain
     Dosage: 250 MG (HALF A TABLET TO UP TO 2 TABLETS PER DAY WHEN NECESSARY)
     Route: 065
  27. SINEMET [Concomitant]
     Active Substance: CARBIDOPA\LEVODOPA
     Indication: Product used for unknown indication
     Dosage: 6 DOSAGE FORM, QD (6:30 3.5 PIECES 9:30 3 PIECES 12:30 PM 3.5 PIECES 2:30 3 PIECES 5:00 3.5 PIECES 7
     Route: 065
     Dates: start: 20210517
  28. METOPROLOL [Concomitant]
     Active Substance: METOPROLOL
     Indication: Product used for unknown indication
     Dosage: 50 MG, QD (1 PER DAY AT 8:00 AM)
     Route: 065
  29. OXAZEPAM [Concomitant]
     Active Substance: OXAZEPAM
     Indication: Restlessness
     Dosage: 10 MG, WHEN NECESSARY HALF A TABLET (5 MG) UP TO 2 XPER DAY HALF A TABLET
     Route: 065
  30. CARBIDOPA\LEVODOPA [Concomitant]
     Active Substance: CARBIDOPA\LEVODOPA
     Indication: Product used for unknown indication
     Dosage: 3 DOSAGE FORM (100/25 MG, LEVODOPA/CARB MGA1X EVERY 3 DAYS AT 10:00 PM)
     Route: 048
  31. POLYETHYLENE GLYCOLS [Concomitant]
     Active Substance: POLYETHYLENE GLYCOLS
     Indication: Bowel movement irregularity
     Dosage: 1 DOSAGE FORM (WHEN NECESSARY)
     Route: 065
  32. AMLODIPINE [Concomitant]
     Active Substance: AMLODIPINE BESYLATE
     Indication: Product used for unknown indication
     Dosage: 5 MG, QD (0.5 PIECE 1X PER DAY AT 8:00 AM)
     Route: 065
  33. SPIRONOLACTONE [Concomitant]
     Active Substance: SPIRONOLACTONE
     Indication: Product used for unknown indication
     Dosage: 25 MG, QD (1 PER DAY AT 8:00 AM)
     Route: 065
  34. MIDAZOLAM [Concomitant]
     Active Substance: MIDAZOLAM
     Indication: Product used for unknown indication
     Dosage: UNK, (5 MG/ML AMPOULE, 1 ML WHEN NECESSARY 2.5 MG MAX. 4 TIMES PER DAY)
     Route: 058
  35. CALCI CHEW [Concomitant]
     Indication: Product used for unknown indication
     Dosage: 500 MG, QD (1 PER DAY AT 9:00 PM)
     Route: 065

REACTIONS (71)
  - Arrhythmia [Fatal]
  - Fluid intake reduced [Fatal]
  - Hypophagia [Fatal]
  - Parkinson^s disease [Fatal]
  - General physical health deterioration [Fatal]
  - Stoma site discharge [Recovered/Resolved]
  - Nausea [Recovered/Resolved]
  - Anxiety [Not Recovered/Not Resolved]
  - Unevaluable event [Recovering/Resolving]
  - Abnormal faeces [Recovered/Resolved]
  - Mobility decreased [Not Recovered/Not Resolved]
  - Hypoacusis [Not Recovered/Not Resolved]
  - Initial insomnia [Unknown]
  - Memory impairment [Not Recovered/Not Resolved]
  - Delusion [Not Recovered/Not Resolved]
  - Dyschezia [Recovered/Resolved]
  - Decreased appetite [Not Recovered/Not Resolved]
  - Muscle spasms [Not Recovered/Not Resolved]
  - Stoma site irritation [Recovered/Resolved]
  - Faeces hard [Unknown]
  - Hallucination, visual [Not Recovered/Not Resolved]
  - Reduced facial expression [Not Recovered/Not Resolved]
  - Loss of personal independence in daily activities [Not Recovered/Not Resolved]
  - Stoma site erythema [Recovered/Resolved]
  - Muscle rigidity [Not Recovered/Not Resolved]
  - On and off phenomenon [Unknown]
  - Abnormal sleep-related event [Not Recovered/Not Resolved]
  - Helplessness [Not Recovered/Not Resolved]
  - Malaise [Not Recovered/Not Resolved]
  - Bradykinesia [Not Recovered/Not Resolved]
  - Somnolence [Recovered/Resolved]
  - Hyperhidrosis [Not Recovered/Not Resolved]
  - Flatulence [Not Recovered/Not Resolved]
  - Depression [Recovered/Resolved]
  - Salivary hypersecretion [Not Recovered/Not Resolved]
  - Hypoaesthesia [Not Recovered/Not Resolved]
  - Insomnia [Not Recovered/Not Resolved]
  - Hallucination [Not Recovered/Not Resolved]
  - Posture abnormal [Not Recovered/Not Resolved]
  - Freezing phenomenon [Not Recovered/Not Resolved]
  - Dyskinesia [Recovering/Resolving]
  - Functional residual capacity [Not Recovered/Not Resolved]
  - Cognitive disorder [Not Recovered/Not Resolved]
  - Body dysmorphic disorder [Not Recovered/Not Resolved]
  - Unevaluable event [Recovering/Resolving]
  - Hypotension [Unknown]
  - Gait disturbance [Not Recovered/Not Resolved]
  - Dysphagia [Not Recovered/Not Resolved]
  - Aphonia [Not Recovered/Not Resolved]
  - Somnolence [Recovering/Resolving]
  - Cognitive disorder [Not Recovered/Not Resolved]
  - Musculoskeletal stiffness [Not Recovered/Not Resolved]
  - Tremor [Not Recovered/Not Resolved]
  - Delusion [Not Recovered/Not Resolved]
  - Nausea [Recovered/Resolved]
  - Stoma site erythema [Unknown]
  - Memory impairment [Not Recovered/Not Resolved]
  - Pain in extremity [Not Recovered/Not Resolved]
  - Hyperkinesia [Not Recovered/Not Resolved]
  - Device difficult to use [Not Recovered/Not Resolved]
  - Headache [Not Recovered/Not Resolved]
  - Gait inability [Not Recovered/Not Resolved]
  - Syncope [Not Recovered/Not Resolved]
  - Medical device site dryness [Unknown]
  - Intentional overdose [Unknown]
  - Extra dose administered [Not Recovered/Not Resolved]
  - Intentional product misuse [Not Recovered/Not Resolved]
  - Device difficult to use [Unknown]
  - Product dose omission in error [Not Recovered/Not Resolved]
  - Therapeutic product effect variable [Not Recovered/Not Resolved]
  - Therapeutic product effect incomplete [Recovered/Resolved]

NARRATIVE: CASE EVENT DATE: 20210101
